FAERS Safety Report 4606922-0 (Version None)
Quarter: 2005Q1

REPORT INFORMATION
  Report Type: 
  Country: None (occurrence: None)
  Receive Date: 20050310
  Receipt Date: 20050217
  Transmission Date: 20050727
  Serious: Yes (Life-Threatening, Hospitalization)
  Sender: FDA-Public Use
  Company Number: 75315

PATIENT
  Age: 93 Year
  Sex: Female
  Weight: 53.5244 kg

DRUGS (6)
  1. AMIODARONE HCL [Suspect]
     Indication: ARRHYTHMIA
     Dosage: 200 MG ONCE DAILY PO
     Route: 048
     Dates: start: 20040401, end: 20041001
  2. COUMADIN [Concomitant]
  3. SYNTHROID [Concomitant]
  4. TOPROL-XL [Concomitant]
  5. FUROSEMIDE [Concomitant]
  6. DILTIAZEM [Concomitant]

REACTIONS (3)
  - BALANCE DISORDER [None]
  - CARDIAC FAILURE CONGESTIVE [None]
  - CONVULSION [None]
